FAERS Safety Report 21378287 (Version 1)
Quarter: 2022Q3

REPORT INFORMATION
  Report Type: Spontaneous
  Country: AT (occurrence: AT)
  Receive Date: 20220927
  Receipt Date: 20220927
  Transmission Date: 20221026
  Serious: Yes (Other)
  Sender: FDA-Public Use
  Company Number: AT-BRISTOL-MYERS SQUIBB COMPANY-2022-111315

PATIENT
  Age: 73 Year
  Sex: Male

DRUGS (4)
  1. LUSPATERCEPT [Suspect]
     Active Substance: LUSPATERCEPT
     Indication: Myelodysplastic syndrome
     Dosage: DOSE : 1,33 MG/KG BODY WEIGHT;     FREQ : UNAVAILABLE
     Route: 065
  2. LUSPATERCEPT [Suspect]
     Active Substance: LUSPATERCEPT
     Route: 065
  3. LUSPATERCEPT [Suspect]
     Active Substance: LUSPATERCEPT
     Route: 065
  4. LUSPATERCEPT [Suspect]
     Active Substance: LUSPATERCEPT
     Route: 065

REACTIONS (3)
  - Terminal ileitis [Unknown]
  - Ileal perforation [Unknown]
  - Pneumonia aspiration [Unknown]

NARRATIVE: CASE EVENT DATE: 20220201
